FAERS Safety Report 12768464 (Version 1)
Quarter: 2016Q3

REPORT INFORMATION
  Report Type: Spontaneous
  Country: US (occurrence: US)
  Receive Date: 20160921
  Receipt Date: 20160921
  Transmission Date: 20161109
  Serious: No
  Sender: FDA-Public Use
  Company Number: US-ROMARKLABS-2016-US-000034

PATIENT
  Age: 64 Year
  Sex: Male

DRUGS (5)
  1. CELEBREX [Concomitant]
     Active Substance: CELECOXIB
     Indication: ARTHRITIS
  2. NO DRUG NAME [Concomitant]
     Indication: HERPES VIRUS INFECTION
  3. ALINIA [Suspect]
     Active Substance: NITAZOXANIDE
     Indication: PRODUCT USED FOR UNKNOWN INDICATION
     Dosage: 1 TABLET TWICE PER DAY
     Route: 048
     Dates: start: 20160413, end: 20160415
  4. NO DRUG NAME [Concomitant]
     Indication: HYPOTHYROIDISM
  5. NO DRUG NAME [Concomitant]
     Indication: DYSPEPSIA

REACTIONS (2)
  - Dizziness [Recovered/Resolved]
  - Nausea [Recovered/Resolved]

NARRATIVE: CASE EVENT DATE: 20160413
